FAERS Safety Report 14999884 (Version 1)
Quarter: 2018Q2

REPORT INFORMATION
  Report Type: Spontaneous
  Country: US (occurrence: US)
  Receive Date: 20180521
  Receipt Date: 20180521
  Transmission Date: 20180711
  Serious: Yes (Hospitalization)
  Sender: FDA-Public Use
  Company Number: None

PATIENT
  Age: 65 Year
  Sex: Female

DRUGS (26)
  1. VITAMIN D3 [Concomitant]
     Active Substance: CHOLECALCIFEROL
  2. METHIMAZOLE. [Concomitant]
     Active Substance: METHIMAZOLE
  3. ISOSORB MONO [Concomitant]
     Active Substance: ISOSORBIDE MONONITRATE
  4. AMOXICILLIN. [Concomitant]
     Active Substance: AMOXICILLIN
  5. SINGULAIR [Concomitant]
     Active Substance: MONTELUKAST SODIUM
  6. EPIPEN [Concomitant]
     Active Substance: EPINEPHRINE
  7. ADVAIR DISKU AER [Concomitant]
  8. WARFARIN [Concomitant]
     Active Substance: WARFARIN
  9. TRIAMCINOLON [Concomitant]
  10. NYSTATUB [Concomitant]
  11. LIDOCAINE. [Concomitant]
     Active Substance: LIDOCAINE
  12. VENTOLIN HFA [Concomitant]
     Active Substance: ALBUTEROL SULFATE
  13. MAGNEBIND [Concomitant]
  14. PREDNISONE. [Concomitant]
     Active Substance: PREDNISONE
  15. EXOXAPARIN [Concomitant]
  16. CALCIUM/D [Concomitant]
  17. XOLAIR [Suspect]
     Active Substance: OMALIZUMAB
     Indication: ASTHMA
     Route: 058
     Dates: start: 20150508
  18. ROSUVASTATIN. [Concomitant]
     Active Substance: ROSUVASTATIN
  19. PROTONIX [Concomitant]
     Active Substance: PANTOPRAZOLE SODIUM
  20. ZYRTEC [Concomitant]
     Active Substance: CETIRIZINE HYDROCHLORIDE
  21. REFRESH TEAR [Concomitant]
  22. LISINOPRIL. [Concomitant]
     Active Substance: LISINOPRIL
  23. FLUTICASONE. [Concomitant]
     Active Substance: FLUTICASONE
  24. DILTIAZEM. [Concomitant]
     Active Substance: DILTIAZEM
  25. BREO ELLIPTA [Suspect]
     Active Substance: FLUTICASONE FUROATE\VILANTEROL TRIFENATATE
  26. AUGMENTIN [Concomitant]
     Active Substance: AMOXICILLIN\CLAVULANATE POTASSIUM

REACTIONS (3)
  - Asthma [None]
  - Cough [None]
  - Memory impairment [None]

NARRATIVE: CASE EVENT DATE: 20180514
